FAERS Safety Report 10405935 (Version 1)
Quarter: 2014Q3

REPORT INFORMATION
  Report Type: Report from Study
  Country: JP (occurrence: JP)
  Receive Date: 20140825
  Receipt Date: 20140825
  Transmission Date: 20150326
  Serious: Yes (Hospitalization)
  Sender: FDA-Public Use
  Company Number: JP-AMGEN-JPNCT2014064407

PATIENT
  Sex: Male

DRUGS (9)
  1. GONAX [Concomitant]
     Active Substance: DEGARELIX
     Dosage: UNK
     Route: 065
     Dates: start: 20130603
  2. CELECOX [Concomitant]
     Active Substance: CELECOXIB
     Dosage: 200 MG, QD
     Route: 048
     Dates: start: 20130827
  3. DENOSUMAB [Suspect]
     Active Substance: DENOSUMAB
     Indication: METASTASES TO BONE
     Dosage: 120 MG, UNK
     Route: 058
     Dates: start: 20130723
  4. TRAMAL [Concomitant]
     Active Substance: TRAMADOL
     Dosage: 100 MG, QD
     Route: 048
     Dates: start: 20130827
  5. BICALUTAMIDE. [Concomitant]
     Active Substance: BICALUTAMIDE
     Dosage: UNK
     Route: 065
     Dates: start: 20130603
  6. DENOTAS [Concomitant]
     Active Substance: CALCIUM CARBONATE\CHOLECALCIFEROL\MAGNESIUM CARBONATE
     Dosage: 2 DF, QD
     Route: 048
     Dates: start: 20130723
  7. MAGMITT [Concomitant]
     Active Substance: MAGNESIUM OXIDE
     Dosage: 500 MG, QD
     Route: 048
     Dates: start: 20130809
  8. GASTER [Concomitant]
     Active Substance: FAMOTIDINE
     Dosage: 20 MG, QD
     Route: 048
     Dates: start: 20130827
  9. NOVAMIN                            /00013301/ [Concomitant]
     Active Substance: PROCHLORPERAZINE MALEATE
     Dosage: 10 MG, QD
     Route: 048
     Dates: start: 20130827

REACTIONS (2)
  - Atypical femur fracture [Unknown]
  - Pathological fracture [Unknown]

NARRATIVE: CASE EVENT DATE: 20131011
